FAERS Safety Report 8328477-X (Version None)
Quarter: 2012Q2

REPORT INFORMATION
  Report Type: 
  Country: None (occurrence: None)
  Receive Date: 20120502
  Receipt Date: 20120502
  Transmission Date: 20120825
  Serious: Yes (Other)
  Sender: FDA-Public Use
  Company Number: None

PATIENT
  Age: 20 Year
  Sex: Male
  Weight: 56.245 kg

DRUGS (1)
  1. TUBERCULIN NOS [Suspect]
     Indication: TUBERCULIN TEST
     Dosage: |DOSAGETEXT: 0.1 ML||STRENGTH: DILUTED APISOL 5 TU/0.1 ML||FREQ: ONCE||ROUTE: INTRADERMAL|
     Route: 023
     Dates: start: 20120401, end: 20120430

REACTIONS (2)
  - NO THERAPEUTIC RESPONSE [None]
  - DRUG HYPERSENSITIVITY [None]
